FAERS Safety Report 5451356-2 (Version None)
Quarter: 2007Q3

REPORT INFORMATION
  Report Type: 
  Country: None (occurrence: None)
  Receive Date: 20070911
  Receipt Date: 20070911
  Transmission Date: 20080115
  Serious: Yes (Hospitalization)
  Sender: FDA-Public Use
  Company Number: None

PATIENT
  Sex: Male
  Weight: 71.82 kg

DRUGS (1)
  1. CISPLATIN [Suspect]
     Dosage: 183 MG
     Dates: end: 20070813

REACTIONS (9)
  - BODY TEMPERATURE INCREASED [None]
  - MOUTH ULCERATION [None]
  - NAUSEA [None]
  - NEUTROPHIL COUNT DECREASED [None]
  - ORAL MUCOSAL EXFOLIATION [None]
  - ORAL PAIN [None]
  - SKIN EXFOLIATION [None]
  - VOMITING [None]
  - WHITE BLOOD CELL COUNT DECREASED [None]
